FAERS Safety Report 6522579-6 (Version None)
Quarter: 2009Q4

REPORT INFORMATION
  Report Type: 
  Country: None (occurrence: None)
  Receive Date: 20091230
  Receipt Date: 20091218
  Transmission Date: 20100525
  Serious: Yes (Death, Other)
  Sender: FDA-Public Use
  Company Number: US-AMGEN-QUU381333

PATIENT
  Age: 33 Year
  Sex: Female

DRUGS (11)
  1. ENBREL [Suspect]
     Indication: DRUG USE FOR UNKNOWN INDICATION
  2. EFFEXOR [Concomitant]
  3. PRILOSEC [Concomitant]
  4. TRICOR [Concomitant]
  5. ASPIRIN [Concomitant]
  6. ATENOLOL [Concomitant]
  7. LIPITOR [Concomitant]
  8. PLAVIX [Concomitant]
  9. NUVARING [Concomitant]
  10. MULTIPLE VITAMINS [Concomitant]
  11. HERBAL SUPPLEMENT [Concomitant]

REACTIONS (1)
  - MYOCARDIAL INFARCTION [None]
